FAERS Safety Report 10061898 (Version 1)
Quarter: 2014Q2

REPORT INFORMATION
  Report Type: Spontaneous
  Country: US (occurrence: US)
  Receive Date: 20140407
  Receipt Date: 20140407
  Transmission Date: 20141212
  Serious: Yes (Hospitalization)
  Sender: FDA-Public Use
  Company Number: US-MPIJNJ-2014MPI000970

PATIENT
  Age: 55 Year
  Sex: Female
  Weight: 39.91 kg

DRUGS (4)
  1. VELCADE [Suspect]
     Indication: STEM CELL TRANSPLANT
     Dosage: 1.3 MG/M2, 4 TIMES IN 28 DAY
     Route: 058
     Dates: start: 20131029, end: 20140214
  2. LENALIDOMIDE [Suspect]
     Indication: STEM CELL TRANSPLANT
     Dosage: 25 MG, 21 DAY IN 28 DAY CYCLE
     Route: 048
     Dates: start: 20131029, end: 20140214
  3. DEXAMETHASONE [Concomitant]
     Indication: PRODUCT USED FOR UNKNOWN INDICATION
  4. ZOFRAN                             /00955302/ [Concomitant]
     Indication: PRODUCT USED FOR UNKNOWN INDICATION
     Dosage: UNK
     Route: 042
     Dates: start: 20131204

REACTIONS (2)
  - Dehydration [Not Recovered/Not Resolved]
  - Mucosal inflammation [Recovering/Resolving]
